FAERS Safety Report 6901939-5 (Version None)
Quarter: 2010Q3

REPORT INFORMATION
  Report Type: 
  Country: None (occurrence: None)
  Receive Date: 20100803
  Receipt Date: 20080404
  Transmission Date: 20110219
  Serious: No
  Sender: FDA-Public Use
  Company Number: US-PFIZER INC-2008029730

PATIENT
  Sex: Female
  Weight: 77.3 kg

DRUGS (3)
  1. LYRICA [Suspect]
     Indication: FIBROMYALGIA
     Dates: start: 20080115, end: 20080402
  2. CONTRACEPTIVE, UNSPECIFIED [Concomitant]
  3. AMITRIPTYLINE HYDROCHLORIDE [Concomitant]

REACTIONS (1)
  - ABDOMINAL PAIN [None]
